FAERS Safety Report 9101835 (Version 1)
Quarter: 2013Q1

REPORT INFORMATION
  Report Type: Spontaneous
  Country: FR (occurrence: FR)
  Receive Date: 20130218
  Receipt Date: 20130218
  Transmission Date: 20140127
  Serious: Yes (Hospitalization)
  Sender: FDA-Public Use
  Company Number: FR-ABBOTT-13P-056-1051582-00

PATIENT
  Age: 54 Year
  Sex: Female

DRUGS (9)
  1. DEPAKINE [Suspect]
     Indication: EPILEPSY
     Dosage: EVERY HOUR
     Route: 042
     Dates: end: 20120910
  2. DEPAKINE [Suspect]
     Dosage: EVERY HOUR
     Route: 042
     Dates: start: 20120912, end: 20120912
  3. DEPAKINE [Suspect]
     Dosage: EVERY HOUR
     Route: 042
     Dates: start: 20120913, end: 20120919
  4. DEPAKINE [Suspect]
     Dosage: EVERY HOUR
     Route: 042
     Dates: start: 20120919, end: 20120924
  5. RIVOTRIL [Concomitant]
     Indication: PRODUCT USED FOR UNKNOWN INDICATION
  6. METFORMIN [Concomitant]
     Indication: PRODUCT USED FOR UNKNOWN INDICATION
  7. SERESTA [Concomitant]
     Indication: PRODUCT USED FOR UNKNOWN INDICATION
  8. EFEXOR [Concomitant]
     Indication: PRODUCT USED FOR UNKNOWN INDICATION
  9. KEPPRA [Concomitant]
     Indication: PRODUCT USED FOR UNKNOWN INDICATION
     Dates: start: 20121022

REACTIONS (7)
  - Hypernatraemia [Recovered/Resolved]
  - Hypocalcaemia [Unknown]
  - Acidosis [Unknown]
  - Thrombocytopenia [Unknown]
  - Haemoglobin decreased [Unknown]
  - Transaminases increased [Unknown]
  - Hyperammonaemia [Unknown]
